FAERS Safety Report 10221981 (Version 1)
Quarter: 2014Q2

REPORT INFORMATION
  Report Type: Report from Study
  Country: ZA (occurrence: ZA)
  Receive Date: 20140606
  Receipt Date: 20140606
  Transmission Date: 20141212
  Serious: Yes (Other)
  Sender: FDA-Public Use
  Company Number: ZA-ABBVIE-14P-143-1245049-00

PATIENT
  Age: 23 Year
  Sex: Female

DRUGS (3)
  1. RITONAVIR [Suspect]
     Indication: HIV INFECTION
     Route: 048
     Dates: start: 20120905, end: 20140327
  2. TRUVADA [Concomitant]
     Indication: HIV INFECTION
     Dates: start: 20120905, end: 20140327
  3. ATAZANAVIR SULFATE [Concomitant]
     Indication: HIV INFECTION
     Dates: start: 20120905, end: 20140327

REACTIONS (1)
  - Abortion spontaneous [Unknown]
